FAERS Safety Report 7171038-9 (Version None)
Quarter: 2010Q4

REPORT INFORMATION
  Report Type: 
  Country: None (occurrence: None)
  Receive Date: 20101217
  Receipt Date: 20101203
  Transmission Date: 20110411
  Serious: Yes (Disabling, Other)
  Sender: FDA-Public Use
  Company Number: GB-AMGEN-GBRSP2010008826

PATIENT

DRUGS (4)
  1. ENBREL [Suspect]
     Indication: PSORIATIC ARTHROPATHY
     Dosage: 50 MG, WEEKLY
     Route: 058
  2. CO-CODAMOL [Concomitant]
     Dosage: UNK
     Route: 048
  3. FOLIC ACID [Concomitant]
     Dosage: 5 MG, UNK
     Route: 048
  4. ACETAMINOPHEN [Concomitant]
     Dosage: UNK
     Route: 048

REACTIONS (2)
  - B-CELL LYMPHOMA [None]
  - PSORIATIC ARTHROPATHY [None]
